FAERS Safety Report 5241860-4 (Version None)
Quarter: 2007Q1

REPORT INFORMATION
  Report Type: 
  Country: None (occurrence: None)
  Receive Date: 20070220
  Receipt Date: 20070208
  Transmission Date: 20070707
  Serious: Yes (Other)
  Sender: FDA-Public Use
  Company Number: AU-PFIZER INC-2007002987

PATIENT
  Sex: Male

DRUGS (6)
  1. SILDENAFIL (PAH) [Suspect]
     Indication: PULMONARY HYPERTENSION
     Route: 048
  2. ARANESP [Concomitant]
     Dosage: DAILY DOSE:40MCG
     Route: 058
  3. WARFARIN SODIUM [Concomitant]
  4. LASIX [Concomitant]
     Dosage: DAILY DOSE:120MG
     Route: 048
  5. DIAMICRON [Concomitant]
  6. DIAFORMIN [Concomitant]

REACTIONS (9)
  - DIABETIC NEUROPATHY [None]
  - GAIT DISTURBANCE [None]
  - HEADACHE [None]
  - JOINT SWELLING [None]
  - OEDEMA PERIPHERAL [None]
  - PAIN IN EXTREMITY [None]
  - PULMONARY ARTERIAL PRESSURE INCREASED [None]
  - VARICOSE VEIN [None]
  - VENOUS PRESSURE JUGULAR INCREASED [None]
